FAERS Safety Report 8895051 (Version 5)
Quarter: 2012Q4

REPORT INFORMATION
  Report Type: 
  Country: US (occurrence: US)
  Receive Date: 20121107
  Receipt Date: 20121206
  Transmission Date: 20130627
  Serious: Yes (Life-Threatening, Hospitalization)
  Sender: FDA-Public Use
  Company Number: US-JNJFOC-20121102792

PATIENT
  Age: 84 Year
  Sex: Female
  Weight: 70.7 kg

DRUGS (12)
  1. RIVAROXABAN [Suspect]
     Indication: CEREBROVASCULAR ACCIDENT PROPHYLAXIS
     Route: 048
  2. RIVAROXABAN [Suspect]
     Indication: ATRIAL FIBRILLATION
     Route: 048
  3. FISH OIL [Concomitant]
  4. MVI [Concomitant]
  5. NIACIN [Concomitant]
  6. ASA [Concomitant]
  7. NEXIUM [Concomitant]
  8. LISINOPRIL [Concomitant]
  9. FUROSEMIDE [Concomitant]
  10. CITALOPRAM [Concomitant]
  11. METOPROLOL [Concomitant]
  12. ROSUVASTATIN [Concomitant]

REACTIONS (6)
  - Haemorrhagic stroke [Recovering/Resolving]
  - Paraesthesia [Recovering/Resolving]
  - Fall [Recovering/Resolving]
  - Partial seizures [Recovering/Resolving]
  - Asthenia [Recovering/Resolving]
  - Incorrect dose administered [Recovered/Resolved]
